FAERS Safety Report 19927026 (Version 2)
Quarter: 2021Q4

REPORT INFORMATION
  Report Type: Spontaneous
  Country: US (occurrence: US)
  Receive Date: 20211006
  Receipt Date: 20211020
  Transmission Date: 20220303
  Serious: No
  Sender: FDA-Public Use
  Company Number: US-AMGEN-USASP2021150757

PATIENT
  Age: 62 Year
  Sex: Female
  Weight: 71.2 kg

DRUGS (4)
  1. MVASI [Suspect]
     Active Substance: BEVACIZUMAB-AWWB
     Indication: Non-small cell lung cancer stage IV
     Dosage: UNK UNK, Q3WK
     Route: 065
     Dates: start: 20210805
  2. MVASI [Suspect]
     Active Substance: BEVACIZUMAB-AWWB
     Indication: Non-small cell lung cancer metastatic
     Dosage: UNK
     Route: 065
  3. TECENTRIQ [Concomitant]
     Active Substance: ATEZOLIZUMAB
  4. CARBOPLATIN [Concomitant]
     Active Substance: CARBOPLATIN

REACTIONS (2)
  - Product preparation error [Unknown]
  - Urine protein/creatinine ratio increased [Unknown]

NARRATIVE: CASE EVENT DATE: 20210826
